FAERS Safety Report 15436628 (Version 2)
Quarter: 2019Q3

REPORT INFORMATION
  Report Type: Spontaneous
  Country: US (occurrence: US)
  Receive Date: 20180927
  Receipt Date: 20190917
  Transmission Date: 20191004
  Serious: No
  Sender: FDA-Public Use
  Company Number: US-PFIZER INC-2018389633

PATIENT
  Age: 78 Year
  Sex: Female

DRUGS (4)
  1. LYRICA [Suspect]
     Active Substance: PREGABALIN
     Indication: NEUROPATHY PERIPHERAL
     Dosage: 150 MG, DAILY (50 IN THE MORNING AND 100 AT NIGHT)
  2. EFFEXOR [Concomitant]
     Active Substance: VENLAFAXINE HYDROCHLORIDE
     Indication: ANXIETY
     Dosage: UNK
  3. LYRICA [Suspect]
     Active Substance: PREGABALIN
     Indication: SYSTEMIC LUPUS ERYTHEMATOSUS
     Dosage: 250 MG, DAILY (2 OF 100 MG AT NIGHT AND 50 MG DURING THE DAY)
  4. LYRICA [Suspect]
     Active Substance: PREGABALIN
     Indication: CUTANEOUS LUPUS ERYTHEMATOSUS
     Dosage: 350 MG, UNK

REACTIONS (10)
  - Condition aggravated [Unknown]
  - Intentional product use issue [Unknown]
  - Bone disorder [Unknown]
  - Burning sensation [Unknown]
  - Pruritus [Unknown]
  - Dysstasia [Unknown]
  - Malaise [Unknown]
  - Impaired work ability [Unknown]
  - Fall [Unknown]
  - Arthralgia [Unknown]
